FAERS Safety Report 19483539 (Version 1)
Quarter: 2021Q3

REPORT INFORMATION
  Report Type: Spontaneous
  Country: GB (occurrence: GB)
  Receive Date: 20210701
  Receipt Date: 20210701
  Transmission Date: 20211014
  Serious: Yes (Other)
  Sender: FDA-Public Use
  Company Number: GB-PFIZER INC-2021737487

PATIENT
  Sex: Male

DRUGS (1)
  1. ANIDULAFUNGIN [Suspect]
     Active Substance: ANIDULAFUNGIN
     Indication: CANDIDA INFECTION
     Dosage: STRENGTH?100MG, GIVEN ONCE, ON SATURDAY
     Route: 042
     Dates: start: 20210605, end: 20210605

REACTIONS (1)
  - Partial seizures [Not Recovered/Not Resolved]
